FAERS Safety Report 8955896 (Version 2)
Quarter: 2013Q1

REPORT INFORMATION
  Report Type: Spontaneous
  Country: AU (occurrence: AU)
  Receive Date: 20121210
  Receipt Date: 20130124
  Transmission Date: 20140127
  Serious: Yes (Hospitalization, Other)
  Sender: FDA-Public Use
  Company Number: AU-PFIZER INC-2012305268

PATIENT
  Age: 66 Year
  Sex: Male

DRUGS (8)
  1. SUNITINIB MALATE [Suspect]
     Indication: METASTATIC RENAL CELL CARCINOMA
     Dosage: 50 MG, UNK
     Route: 048
  2. BENZHEXOL [Concomitant]
     Indication: TREMOR
     Dosage: 4 MG, 3X/DAY
     Route: 048
  3. STELAZINE [Concomitant]
     Indication: SCHIZOPHRENIA
     Dosage: 10 MG, 3X/DAY
     Route: 048
  4. TARGIN [Concomitant]
  5. THYROXINE [Concomitant]
     Indication: HYPOTHYROIDISM
     Dosage: 150 UG, 1X/DAY IN THE MORNING
     Route: 048
  6. WARFARIN [Concomitant]
  7. GOPTEN [Concomitant]
     Indication: HYPERTENSION
     Dosage: 1 MG, 1X/DAY IN THE MORNING
     Route: 048
  8. ALLOPURINOL [Concomitant]
     Indication: GOUT
     Dosage: 300 MG, 1X/DAY IN THE MORNING
     Route: 048

REACTIONS (2)
  - Orthostatic hypotension [Recovered/Resolved]
  - Syncope [Recovered/Resolved]
